FAERS Safety Report 13735259 (Version 7)
Quarter: 2018Q3

REPORT INFORMATION
  Report Type: Report from Study
  Country: CA (occurrence: CA)
  Receive Date: 20170710
  Receipt Date: 20180704
  Transmission Date: 20181010
  Serious: Yes (Life-Threatening, Hospitalization, Other)
  Sender: FDA-Public Use
  Company Number: CA-ROCHE-1356654

PATIENT
  Age: 64 Year
  Sex: Female
  Weight: 57.6 kg

DRUGS (16)
  1. RITUXAN [Suspect]
     Active Substance: RITUXIMAB
     Indication: RHEUMATOID ARTHRITIS
     Dosage: FORM STRENGTH: 500 MG/50 ML?MOST RECENT DOSE WAS ON 19/JUN/2014?MOST RECENT RITUXAN DOSE ON 18/JAN/2
     Route: 042
     Dates: start: 20101102
  2. DIPHENHYDRAMINE HCL [Concomitant]
     Active Substance: DIPHENHYDRAMINE HYDROCHLORIDE
     Route: 048
     Dates: start: 20101102
  3. METHYLPREDNISOLONE. [Concomitant]
     Active Substance: METHYLPREDNISOLONE
     Route: 042
  4. PMS?SULFASALAZINE [Concomitant]
     Active Substance: SULFASALAZINE
  5. ELTROXIN [Concomitant]
     Active Substance: LEVOTHYROXINE
  6. HYDROMORPHONE [Concomitant]
     Active Substance: HYDROMORPHONE
  7. PREDNISONE. [Suspect]
     Active Substance: PREDNISONE
     Indication: PRODUCT USED FOR UNKNOWN INDICATION
     Dosage: STOPPED APPROX. JAN 2013
     Route: 065
     Dates: end: 201301
  8. ACETAMINOPHEN. [Concomitant]
     Active Substance: ACETAMINOPHEN
     Route: 048
     Dates: start: 20101102
  9. LORAZEPAM. [Concomitant]
     Active Substance: LORAZEPAM
  10. NAPROXEN EC [Suspect]
     Active Substance: NAPROXEN
     Indication: PRODUCT USED FOR UNKNOWN INDICATION
     Route: 065
     Dates: end: 20141201
  11. APO?LEFLUNOMIDE [Suspect]
     Active Substance: LEFLUNOMIDE
     Indication: PRODUCT USED FOR UNKNOWN INDICATION
     Dosage: STOPPED APPROX. AUG 2013
     Route: 065
     Dates: end: 201308
  12. GABAPENTIN. [Concomitant]
     Active Substance: GABAPENTIN
  13. PLAQUENIL [Suspect]
     Active Substance: HYDROXYCHLOROQUINE SULFATE
     Indication: PRODUCT USED FOR UNKNOWN INDICATION
     Route: 065
  14. ACTONEL [Suspect]
     Active Substance: RISEDRONATE SODIUM
     Indication: PRODUCT USED FOR UNKNOWN INDICATION
     Route: 065
     Dates: end: 201301
  15. APO?HYDROXYQUINE [Concomitant]
     Active Substance: HYDROXYCHLOROQUINE SULFATE
  16. LANSOPRAZOLE. [Concomitant]
     Active Substance: LANSOPRAZOLE

REACTIONS (32)
  - White blood cell count decreased [Unknown]
  - Malaise [Unknown]
  - Weight increased [Unknown]
  - Cough [Recovered/Resolved]
  - Ear pruritus [Recovered/Resolved]
  - Colitis microscopic [Not Recovered/Not Resolved]
  - Hypertension [Unknown]
  - Nasopharyngitis [Recovered/Resolved]
  - Headache [Recovered/Resolved]
  - Pyrexia [Recovered/Resolved]
  - Fatigue [Not Recovered/Not Resolved]
  - Hypotension [Unknown]
  - Blood pressure increased [Not Recovered/Not Resolved]
  - Hypotension [Not Recovered/Not Resolved]
  - Single functional kidney [Unknown]
  - Arthralgia [Not Recovered/Not Resolved]
  - Sleep disorder [Unknown]
  - Procedural pain [Recovered/Resolved]
  - Renal disorder [Unknown]
  - Cataract [Recovered/Resolved]
  - Blood pressure fluctuation [Unknown]
  - Nasal congestion [Recovered/Resolved]
  - Blood pressure decreased [Not Recovered/Not Resolved]
  - Perforated ulcer [Unknown]
  - Hypotension [Unknown]
  - Body temperature decreased [Unknown]
  - Nasopharyngitis [Recovered/Resolved]
  - Weight decreased [Unknown]
  - Diarrhoea [Unknown]
  - Chills [Recovered/Resolved]
  - Blood creatinine increased [Not Recovered/Not Resolved]
  - Throat irritation [Recovered/Resolved]

NARRATIVE: CASE EVENT DATE: 2014
